FAERS Safety Report 6584784-2 (Version None)
Quarter: 2010Q1

REPORT INFORMATION
  Report Type: 
  Country: None (occurrence: None)
  Receive Date: 20100217
  Receipt Date: 20100127
  Transmission Date: 20100710
  Serious: Yes (Other)
  Sender: FDA-Public Use
  Company Number: CL-BAYER-201013927GPV

PATIENT
  Age: 36 Year
  Sex: Female

DRUGS (5)
  1. ALEMTUZUMAB [Suspect]
     Indication: INTESTINAL TRANSPLANT
  2. TACROLIMUS [Suspect]
     Indication: INTESTINAL TRANSPLANT
  3. SIROLIMUS [Suspect]
     Indication: INTESTINAL TRANSPLANT
  4. MYCOPHENOLATE MOFETIL [Suspect]
     Indication: INTESTINAL TRANSPLANT
  5. CORTICOSTEROIDS [Suspect]
     Indication: INTESTINAL TRANSPLANT

REACTIONS (3)
  - GASTROINTESTINAL HAEMORRHAGE [None]
  - INFECTION [None]
  - RENAL FAILURE [None]
